FAERS Safety Report 21471851 (Version 2)
Quarter: 2022Q4

REPORT INFORMATION
  Report Type: Spontaneous
  Country: IT (occurrence: IT)
  Receive Date: 20221018
  Receipt Date: 20221027
  Transmission Date: 20230112
  Serious: Yes (Hospitalization)
  Sender: FDA-Public Use
  Company Number: IT-JNJFOC-20221023277

PATIENT
  Age: 58 Year
  Sex: Male

DRUGS (6)
  1. COBICISTAT\DARUNAVIR ETHANOLATE [Suspect]
     Active Substance: COBICISTAT\DARUNAVIR ETHANOLATE
     Indication: SARS-CoV-2 test positive
     Dosage: 800/150 MG FOR 10 DAYS
     Route: 048
  2. AZITHROMYCIN [Concomitant]
     Active Substance: AZITHROMYCIN
     Indication: SARS-CoV-2 test positive
  3. CORTICOSTEROID NOS [Concomitant]
     Active Substance: CORTICOSTEROID NOS
     Indication: SARS-CoV-2 test positive
  4. HEPARIN [Concomitant]
     Active Substance: HEPARIN SODIUM
     Indication: SARS-CoV-2 test positive
  5. HYDROXYCHLOROQUINE [Concomitant]
     Active Substance: HYDROXYCHLOROQUINE
     Indication: SARS-CoV-2 test positive
  6. TOCILIZUMAB [Concomitant]
     Active Substance: TOCILIZUMAB
     Indication: Interleukin level increased

REACTIONS (2)
  - Pneumonia klebsiella [Recovered/Resolved]
  - Off label use [Unknown]

NARRATIVE: CASE EVENT DATE: 20200801
